FAERS Safety Report 4829153-8 (Version None)
Quarter: 2005Q4

REPORT INFORMATION
  Report Type: 
  Country: None (occurrence: None)
  Receive Date: 20051027
  Receipt Date: 20050308
  Transmission Date: 20060501
  Serious: Yes (Other)
  Sender: FDA-Public Use
  Company Number: HQWYE614026AUG04

PATIENT
  Age: 71 Year
  Sex: Female
  Weight: 63.56 kg

DRUGS (5)
  1. PREMARIN [Suspect]
     Indication: HOT FLUSH
     Dosage: UNSPECIFIED; ORAL
     Route: 048
     Dates: start: 19710101, end: 19960101
  2. PROVERA [Suspect]
     Indication: HOT FLUSH
     Dosage: UNSPECIFIED; ORAL
     Route: 048
     Dates: start: 19710101, end: 19960101
  3. KETOPROFEN [Concomitant]
  4. HYDROCHLOROTHIAZIDE [Concomitant]
  5. PLAVIX [Concomitant]

REACTIONS (1)
  - BREAST CANCER [None]
